FAERS Safety Report 17299012 (Version 2)
Quarter: 2020Q1

REPORT INFORMATION
  Report Type: Spontaneous
  Country: JP (occurrence: JP)
  Receive Date: 20200122
  Receipt Date: 20200205
  Transmission Date: 20200409
  Serious: Yes (Hospitalization, Other)
  Sender: FDA-Public Use
  Company Number: JP-FERRINGPH-2020FE00246

PATIENT
  Age: 18 Year
  Sex: Male

DRUGS (1)
  1. MINIRINMELT [Suspect]
     Active Substance: DESMOPRESSIN ACETATE
     Indication: DIABETES INSIPIDUS
     Dosage: 30 UG
     Route: 060

REACTIONS (4)
  - Dysphagia [Unknown]
  - Condition aggravated [Unknown]
  - Wrong technique in product usage process [Unknown]
  - Ileus [Unknown]
